FAERS Safety Report 4954617-6 (Version None)
Quarter: 2006Q1

REPORT INFORMATION
  Report Type: 
  Country: None (occurrence: None)
  Receive Date: 20060327
  Receipt Date: 20060316
  Transmission Date: 20060701
  Serious: Yes (Hospitalization)
  Sender: FDA-Public Use
  Company Number: AU-ROCHE-441035

PATIENT
  Age: 33 Year
  Sex: Male

DRUGS (4)
  1. MYCOPHENOLATE MOFETIL [Suspect]
     Route: 065
  2. CORTICOSTEROID NOS [Suspect]
     Route: 065
  3. DACLIZUMAB [Suspect]
     Route: 065
  4. TACROLIMUS [Suspect]
     Dosage: REPORTED AS 2 DOSE UNSPECIFIED. DAILY.
     Route: 048
     Dates: start: 20050411

REACTIONS (5)
  - ACUTE CORONARY SYNDROME [None]
  - CHEST PAIN [None]
  - COMPLICATIONS OF TRANSPLANTED KIDNEY [None]
  - GASTRIC ULCER [None]
  - PSEUDOMONAL SEPSIS [None]
